FAERS Safety Report 8576190-6 (Version None)
Quarter: 2012Q3

REPORT INFORMATION
  Report Type: 
  Country: None (occurrence: None)
  Receive Date: 20120724
  Receipt Date: 20120709
  Transmission Date: 20120928
  Serious: Yes (Life-Threatening)
  Sender: FDA-Public Use
  Company Number: DSJ-2012-12312

PATIENT
  Age: 55 Year
  Sex: Male

DRUGS (4)
  1. NIFEDIPINE [Suspect]
     Indication: SUICIDE ATTEMPT
     Dosage: 1680 MG, PER ORAL
     Route: 048
  2. ATENOLOL [Suspect]
     Indication: SUICIDE ATTEMPT
     Dosage: 1175 MG, PER ORAL
     Route: 048
  3. DOXAZOSIN MESYLATE [Suspect]
     Indication: SUICIDE ATTEMPT
     Dosage: 78 MG, PER ORAL
     Route: 048
  4. OLMESARTAN MEDOXOMIL [Suspect]
     Indication: SUICIDE ATTEMPT
     Dosage: 940 MG, PER ORAL
     Route: 048

REACTIONS (6)
  - SUICIDE ATTEMPT [None]
  - SINUS BRADYCARDIA [None]
  - CIRCULATORY COLLAPSE [None]
  - GAIT DISTURBANCE [None]
  - OVERDOSE [None]
  - SHOCK [None]
